FAERS Safety Report 8013035-7 (Version None)
Quarter: 2011Q4

REPORT INFORMATION
  Report Type: 
  Country: None (occurrence: None)
  Receive Date: 20111229
  Receipt Date: 20111219
  Transmission Date: 20120403
  Serious: Yes (Life-Threatening, Hospitalization, Other)
  Sender: FDA-Public Use
  Company Number: DE-PFIZER INC-2011314676

PATIENT
  Age: 68 Year
  Sex: Male
  Weight: 74 kg

DRUGS (6)
  1. CIPROFLOXACIN [Suspect]
     Dosage: 2 DF, 1X/DAY
     Route: 048
     Dates: start: 20110826, end: 20110904
  2. PANTOPRAZOLE SODIUM [Suspect]
     Dosage: 1 DF, 1X/DAY
     Route: 048
     Dates: start: 20110908, end: 20111004
  3. SPIRIVA [Concomitant]
     Indication: CHRONIC OBSTRUCTIVE PULMONARY DISEASE
     Dosage: (1 DOSAGE FORMS,1 IN 1 D)
     Dates: start: 20060101
  4. DICLOFENAC SODIUM [Suspect]
     Dosage: 1 DF, 1X/DAY
     Route: 048
     Dates: start: 20110829, end: 20111004
  5. ATMADISC [Concomitant]
     Indication: CHRONIC OBSTRUCTIVE PULMONARY DISEASE
     Dosage: 2 DOSAGE FORMS (1 IN 1 D)
     Dates: start: 20060101, end: 20111004
  6. BERODUAL [Concomitant]
     Indication: CHRONIC OBSTRUCTIVE PULMONARY DISEASE
     Dosage: (2 PUFF(S),NEARLY 1-2 TIMES WEEKLY.)
     Dates: start: 20060101

REACTIONS (6)
  - RENAL TUBULAR DISORDER [None]
  - ACUTE PRERENAL FAILURE [None]
  - RENAL FAILURE ACUTE [None]
  - CONSTIPATION [None]
  - HAEMODIALYSIS [None]
  - ABDOMINAL PAIN [None]
